FAERS Safety Report 6788330-X (Version None)
Quarter: 2010Q2

REPORT INFORMATION
  Report Type: 
  Country: None (occurrence: None)
  Receive Date: 20100623
  Receipt Date: 20080411
  Transmission Date: 20101027
  Serious: No
  Sender: FDA-Public Use
  Company Number: US-PFIZER INC-2008014299

PATIENT
  Sex: Male
  Weight: 68.181 kg

DRUGS (4)
  1. XALATAN [Suspect]
     Indication: INTRAOCULAR PRESSURE INCREASED
     Route: 047
  2. ZOCOR [Concomitant]
  3. FINASTERIDE [Concomitant]
  4. ACETYLSALICYLIC ACID [Concomitant]

REACTIONS (2)
  - EYE DISORDER [None]
  - WRONG TECHNIQUE IN DRUG USAGE PROCESS [None]
